FAERS Safety Report 14695186 (Version 1)
Quarter: 2018Q1

REPORT INFORMATION
  Report Type: Spontaneous
  Country: US (occurrence: US)
  Receive Date: 20180329
  Receipt Date: 20180329
  Transmission Date: 20180509
  Serious: No
  Sender: FDA-Public Use
  Company Number: US-UPSHER-SMITH LABORATORIES, LLC-2017USL00190

PATIENT
  Age: 67 Year
  Sex: Female
  Weight: 58.5 kg

DRUGS (5)
  1. PREVALITE [Suspect]
     Active Substance: CHOLESTYRAMINE
     Indication: FREQUENT BOWEL MOVEMENTS
     Dosage: 4 G, 1X/DAY
     Route: 048
     Dates: start: 2007, end: 20170828
  2. CLONAZEPAM. [Concomitant]
     Active Substance: CLONAZEPAM
  3. PREVALITE [Suspect]
     Active Substance: CHOLESTYRAMINE
     Dosage: UNK, 1X/DAY, 4 G (ONE PACKET) AND 1 TEASPOON OF A SECOND PACKET
     Route: 048
     Dates: start: 20170830
  4. AMITRIPTYLINE [Concomitant]
     Active Substance: AMITRIPTYLINE
  5. PREVALITE [Suspect]
     Active Substance: CHOLESTYRAMINE
     Dosage: 8 G, 1X/DAY
     Route: 048
     Dates: start: 20170829, end: 20170829

REACTIONS (6)
  - Constipation [Recovered/Resolved]
  - Nasopharyngitis [Unknown]
  - Abdominal pain [Recovered/Resolved]
  - Drug ineffective for unapproved indication [Recovered/Resolved]
  - Abdominal pain upper [Recovered/Resolved]
  - Feeling abnormal [Recovered/Resolved]

NARRATIVE: CASE EVENT DATE: 2007
